FAERS Safety Report 5604807-4 (Version None)
Quarter: 2008Q1

REPORT INFORMATION
  Report Type: 
  Country: None (occurrence: None)
  Receive Date: 20080128
  Receipt Date: 20080115
  Transmission Date: 20080703
  Serious: Yes (Hospitalization)
  Sender: FDA-Public Use
  Company Number: US-ELI_LILLY_AND_COMPANY-US200801003095

PATIENT
  Age: 55 Year
  Sex: Female

DRUGS (15)
  1. CYMBALTA [Suspect]
     Indication: DEPRESSION
     Dosage: 60 MG, UNK
     Dates: start: 20050101
  2. ACIPHEX [Concomitant]
  3. DOCUSATE SODIUM [Concomitant]
  4. POTASSIUM CHLORIDE [Concomitant]
     Dosage: 10 MEQ, UNK
  5. TRAZODONE HCL [Concomitant]
     Dosage: 200 MG, UNK
  6. SIMVASTATIN [Concomitant]
     Dosage: 20 MG, UNK
  7. LISINOPRIL [Concomitant]
     Dosage: 20 MG, UNK
  8. ANAFRANIL [Concomitant]
     Dosage: UNK, 2/D
  9. BUSPAR [Concomitant]
  10. FUROSEMIDE [Concomitant]
  11. THYROID TAB [Concomitant]
  12. PERIACTIN [Concomitant]
  13. GLUCOPHAGE [Concomitant]
  14. VISTARIL [Concomitant]
  15. DARVOCET [Concomitant]

REACTIONS (1)
  - GASTRIC BYPASS [None]
